FAERS Safety Report 17348797 (Version 1)
Quarter: 2020Q1

REPORT INFORMATION
  Report Type: Report from Study
  Country: US (occurrence: US)
  Receive Date: 20200129
  Receipt Date: 20200129
  Transmission Date: 20200409
  Serious: No
  Sender: FDA-Public Use
  Company Number: US-EXELIXIS-CABO-19024674

PATIENT
  Sex: Male

DRUGS (22)
  1. CABOMETYX [Suspect]
     Active Substance: CABOZANTINIB S-MALATE
     Dosage: 30 MG, QD (BY SPLITTING 60 MG TAB)
     Route: 048
  2. VITAMIN D3 [Concomitant]
     Active Substance: CHOLECALCIFEROL
  3. CABOMETYX [Suspect]
     Active Substance: CABOZANTINIB S-MALATE
     Indication: RENAL CELL CARCINOMA
     Dosage: 20MG, QD WK1; 40 MG, QD WK2, 60MG QD WK3
     Route: 048
     Dates: start: 20180703
  4. LIPITOR [Concomitant]
     Active Substance: ATORVASTATIN CALCIUM
  5. LOMOTIL [Concomitant]
     Active Substance: ATROPINE SULFATE\DIPHENOXYLATE HYDROCHLORIDE
  6. FOLIC ACID. [Concomitant]
     Active Substance: FOLIC ACID
  7. TRIAMCINOLONE ACETONIDE. [Concomitant]
     Active Substance: TRIAMCINOLONE ACETONIDE
  8. AMITRIPTYLINE HCL [Concomitant]
     Active Substance: AMITRIPTYLINE
  9. ASPIRIN. [Concomitant]
     Active Substance: ASPIRIN
  10. ZINC. [Concomitant]
     Active Substance: ZINC
  11. GABAPENTIN. [Concomitant]
     Active Substance: GABAPENTIN
  12. LORAZEPAM. [Concomitant]
     Active Substance: LORAZEPAM
  13. CABOMETYX [Suspect]
     Active Substance: CABOZANTINIB S-MALATE
     Dosage: 60 MG
     Route: 048
  14. NOVOLOG [Concomitant]
     Active Substance: INSULIN ASPART
  15. LEVOTHYROXINE SODIUM. [Concomitant]
     Active Substance: LEVOTHYROXINE SODIUM
  16. TUMS [Concomitant]
     Active Substance: CALCIUM CARBONATE
  17. KETOCONAZOLE. [Concomitant]
     Active Substance: KETOCONAZOLE
  18. PANTOPRAZOLE SODIUM. [Concomitant]
     Active Substance: PANTOPRAZOLE SODIUM
  19. FAMOTIDINE. [Concomitant]
     Active Substance: FAMOTIDINE
  20. DILAUDID [Concomitant]
     Active Substance: HYDROMORPHONE HYDROCHLORIDE
  21. FERROUS GLUCONATE [Concomitant]
     Active Substance: FERROUS GLUCONATE
  22. LANTUS [Concomitant]
     Active Substance: INSULIN GLARGINE

REACTIONS (10)
  - Stomatitis [Unknown]
  - Osteonecrosis [Unknown]
  - Vomiting [Unknown]
  - Osteoporosis [Unknown]
  - Wrong technique in product usage process [Unknown]
  - Rash [Unknown]
  - Diarrhoea [Unknown]
  - Decreased appetite [Unknown]
  - Weight decreased [Unknown]
  - Abdominal discomfort [Unknown]
